FAERS Safety Report 13772967 (Version 1)
Quarter: 2017Q3

REPORT INFORMATION
  Report Type: Spontaneous
  Country: US (occurrence: US)
  Receive Date: 20170720
  Receipt Date: 20170720
  Transmission Date: 20171127
  Serious: No
  Sender: FDA-Public Use
  Company Number: US-PERRIGO-17US000849

PATIENT
  Age: 77 Year
  Sex: Male
  Weight: 79.82 kg

DRUGS (2)
  1. PREDNISONE. [Concomitant]
     Active Substance: PREDNISONE
     Indication: RASH
     Dosage: UNK
     Route: 048
     Dates: start: 20170116
  2. CLOBETASOL PROPIONATE. [Suspect]
     Active Substance: CLOBETASOL PROPIONATE
     Indication: RASH
     Dosage: 26 SPRAYS, SINGLE
     Route: 061
     Dates: start: 20170116, end: 20170116

REACTIONS (3)
  - Application site pruritus [Recovered/Resolved]
  - Application site pain [Recovered/Resolved]
  - Off label use [Recovered/Resolved]

NARRATIVE: CASE EVENT DATE: 20170116
